FAERS Safety Report 8402504-3 (Version None)
Quarter: 2012Q2

REPORT INFORMATION
  Report Type: 
  Country: None (occurrence: None)
  Receive Date: 20120601
  Receipt Date: 20120524
  Transmission Date: 20120825
  Serious: Yes (Other)
  Sender: FDA-Public Use
  Company Number: PHHY2012BR037507

PATIENT
  Sex: Male
  Weight: 65 kg

DRUGS (3)
  1. ASPIRIN [Concomitant]
     Indication: BLOOD DISORDER
     Dosage: 1 DF, QD
     Route: 048
  2. EXELON [Suspect]
     Indication: SENILE DEMENTIA
     Dosage: EXELON TTS 9 MG/ 5CM2, 1 PATCH DAILY
     Route: 062
  3. TRILEPTAL [Concomitant]
     Indication: CONVULSION
     Dosage: 1 DF, QD
     Route: 048

REACTIONS (6)
  - STATUS EPILEPTICUS [None]
  - DISORIENTATION [None]
  - DEPRESSED MOOD [None]
  - ABNORMAL BEHAVIOUR [None]
  - DAYDREAMING [None]
  - SOMNOLENCE [None]
